FAERS Safety Report 7795188-9 (Version None)
Quarter: 2011Q4

REPORT INFORMATION
  Report Type: 
  Country: None (occurrence: None)
  Receive Date: 20111004
  Receipt Date: 20110929
  Transmission Date: 20120403
  Serious: Yes (Other)
  Sender: FDA-Public Use
  Company Number: IE-ABBOTT-11P-229-0860197-00

PATIENT
  Sex: Female

DRUGS (6)
  1. HUMIRA [Suspect]
     Route: 058
  2. MEZEVENT [Concomitant]
     Indication: PRODUCT USED FOR UNKNOWN INDICATION
  3. IMURAN [Concomitant]
     Indication: PRODUCT USED FOR UNKNOWN INDICATION
  4. DEXAMETHASONE [Concomitant]
     Indication: PRODUCT USED FOR UNKNOWN INDICATION
  5. HUMIRA [Suspect]
     Dosage: (80MG)
     Route: 058
  6. HUMIRA [Suspect]
     Indication: COLITIS ULCERATIVE
     Dosage: (160MG)
     Route: 058
     Dates: start: 20110603

REACTIONS (1)
  - OROPHARYNGEAL PAIN [None]
